FAERS Safety Report 6763970-2 (Version None)
Quarter: 2010Q2

REPORT INFORMATION
  Report Type: 
  Country: None (occurrence: None)
  Receive Date: 20100610
  Receipt Date: 20100531
  Transmission Date: 20101027
  Serious: Yes (Life-Threatening, Hospitalization)
  Sender: FDA-Public Use
  Company Number: JP-JNJFOC-20091000663

PATIENT
  Sex: Male
  Weight: 65 kg

DRUGS (11)
  1. REMICADE [Suspect]
     Indication: UVEITIS
     Route: 042
  2. REMICADE [Suspect]
     Route: 042
  3. REMICADE [Suspect]
     Route: 042
  4. REMICADE [Suspect]
     Indication: BEHCET'S SYNDROME
     Route: 042
  5. REMICADE [Suspect]
     Route: 042
  6. REMICADE [Suspect]
     Route: 042
  7. NEORAL [Concomitant]
     Indication: BEHCET'S SYNDROME
     Route: 048
  8. COLCHICINE [Concomitant]
     Indication: BEHCET'S SYNDROME
     Route: 048
  9. PREDONINE [Concomitant]
     Indication: BEHCET'S SYNDROME
     Route: 048
  10. PENTASA [Concomitant]
     Indication: BEHCET'S SYNDROME
     Route: 048
  11. NEO-MINOPHAGEN C [Concomitant]
     Indication: PROPHYLAXIS

REACTIONS (1)
  - LUNG SQUAMOUS CELL CARCINOMA STAGE UNSPECIFIED [None]
